FAERS Safety Report 7843805-7 (Version None)
Quarter: 2011Q4

REPORT INFORMATION
  Report Type: 
  Country: None (occurrence: None)
  Receive Date: 20111025
  Receipt Date: 20110928
  Transmission Date: 20120403
  Serious: Yes (Life-Threatening, Hospitalization)
  Sender: FDA-Public Use
  Company Number: US-BAYER-2011-024101

PATIENT
  Age: 32 Year
  Sex: Female

DRUGS (6)
  1. ATENOLOL [Concomitant]
  2. YAZ [Suspect]
     Dosage: UNK
     Route: 048
     Dates: start: 20070701, end: 20100901
  3. TRAMADOL HCL [Concomitant]
  4. ANTACIDS [Concomitant]
  5. CYMBALTA [Concomitant]
  6. HYDROCODONE BITARTRATE AND ACETAMINOPHEN [Concomitant]

REACTIONS (7)
  - GENERAL PHYSICAL HEALTH DETERIORATION [None]
  - ANHEDONIA [None]
  - INJURY [None]
  - EMOTIONAL DISTRESS [None]
  - THROMBOSIS [None]
  - CHOLELITHIASIS [None]
  - PAIN [None]
